FAERS Safety Report 6992483-8 (Version None)
Quarter: 2010Q3

REPORT INFORMATION
  Report Type: 
  Country: None (occurrence: None)
  Receive Date: 20100915
  Receipt Date: 20100831
  Transmission Date: 20110219
  Serious: Yes (Other)
  Sender: FDA-Public Use
  Company Number: 1000016118

PATIENT
  Age: 50 Year
  Sex: Male

DRUGS (5)
  1. CITALOPRAM HYDROBROMIDE [Suspect]
     Dosage: 200 MG (200 MG, ONCE), ORAL
     Route: 048
     Dates: start: 20100831, end: 20100831
  2. MARCUMAR [Suspect]
     Dosage: 15 MG (15 MG, ONCE), ORAL
     Route: 048
     Dates: start: 20100831, end: 20100831
  3. AMLODIPINE [Suspect]
     Dosage: 20 MG (20 MG, ONCE), ORAL
     Route: 048
     Dates: start: 20100831, end: 20100831
  4. DELIX PLUS (RAMIPRIL, HYDROCHLOROTHIAZIDE) (TABLETS) [Suspect]
     Dosage: 10 MG/ 50 MG (ONCE), ORAL
     Route: 048
     Dates: start: 20100831, end: 20100831
  5. ALCOHOL (ETHANOL) [Suspect]
     Dosage: 3 BOTTLES OF HARD LIQUOR AT MOST
     Dates: start: 20100831, end: 20100831

REACTIONS (5)
  - AGGRESSION [None]
  - ALCOHOL POISONING [None]
  - HYPERTENSION [None]
  - MULTIPLE DRUG OVERDOSE INTENTIONAL [None]
  - SUICIDE ATTEMPT [None]
